FAERS Safety Report 7500119-2 (Version None)
Quarter: 2011Q2

REPORT INFORMATION
  Report Type: 
  Country: None (occurrence: None)
  Receive Date: 20110524
  Receipt Date: 20100602
  Transmission Date: 20111010
  Serious: No
  Sender: FDA-Public Use
  Company Number: US-NOVEN-ALL1-2010-01720

PATIENT

DRUGS (1)
  1. DAYTRANA [Suspect]
     Indication: ATTENTION DEFICIT/HYPERACTIVITY DISORDER
     Dosage: 30 MG, 1X/DAY:QD
     Route: 062
     Dates: start: 20091001

REACTIONS (4)
  - APPLICATION SITE PAIN [None]
  - OFF LABEL USE [None]
  - APPLICATION SITE ERYTHEMA [None]
  - APPLICATION SITE PRURITUS [None]
